FAERS Safety Report 18298997 (Version 1)
Quarter: 2020Q3

REPORT INFORMATION
  Report Type: Spontaneous
  Country: FR (occurrence: FR)
  Receive Date: 20200922
  Receipt Date: 20200922
  Transmission Date: 20201103
  Serious: Yes (Other)
  Sender: FDA-Public Use
  Company Number: FR-TOLMAR, INC.-20FR022850

PATIENT
  Sex: Male

DRUGS (4)
  1. KARDEGIC [Concomitant]
     Active Substance: ASPIRIN DL-LYSINE
     Indication: PRODUCT USED FOR UNKNOWN INDICATION
     Route: 065
  2. IRBESARTAN. [Concomitant]
     Active Substance: IRBESARTAN
     Indication: PRODUCT USED FOR UNKNOWN INDICATION
     Route: 065
  3. ELIGARD [Suspect]
     Active Substance: LEUPROLIDE ACETATE
     Indication: PROSTATE CANCER
     Dosage: 22.5 MG EVERY 84 DAYS
     Route: 065
     Dates: start: 2007, end: 2013
  4. ELIGARD [Suspect]
     Active Substance: LEUPROLIDE ACETATE
     Dosage: 22.5 MG EVERY 84 DAYS
     Route: 065
     Dates: start: 2014

REACTIONS (12)
  - Blood pressure abnormal [Unknown]
  - Nocturia [Unknown]
  - Prostatic specific antigen increased [Unknown]
  - Pallor [Unknown]
  - Back pain [Unknown]
  - Loss of libido [Unknown]
  - Type 2 diabetes mellitus [Unknown]
  - Ageusia [Unknown]
  - Decreased appetite [Unknown]
  - Anosmia [Unknown]
  - Vertigo [Unknown]
  - Asthenia [Unknown]
